FAERS Safety Report 16851500 (Version 1)
Quarter: 2019Q3

REPORT INFORMATION
  Report Type: Spontaneous
  Country: US (occurrence: US)
  Receive Date: 20190925
  Receipt Date: 20190925
  Transmission Date: 20191005
  Serious: Yes (Other)
  Sender: FDA-Public Use
  Company Number: US-PFIZER INC-2019408086

PATIENT
  Age: 53 Year
  Sex: Female
  Weight: 82 kg

DRUGS (6)
  1. LYRICA [Suspect]
     Active Substance: PREGABALIN
     Indication: PAIN IN EXTREMITY
  2. HYDROCODONE [Concomitant]
     Active Substance: HYDROCODONE
     Dosage: UNK
  3. LYRICA [Suspect]
     Active Substance: PREGABALIN
     Indication: PAIN
  4. CYMBALTA [Concomitant]
     Active Substance: DULOXETINE HYDROCHLORIDE
     Indication: DEPRESSION
     Dosage: UNK
     Dates: start: 2011
  5. LYRICA [Suspect]
     Active Substance: PREGABALIN
     Indication: MYOFASCIAL PAIN SYNDROME
     Dosage: 50 MG, UNK (1 CAPSULE AT NIGHT, BUT IF IT GETS BAD SHE TAKES 1 IN THE MORNING AND 1 AT NIGHT)
     Dates: start: 200911
  6. LYRICA [Suspect]
     Active Substance: PREGABALIN
     Indication: BACK PAIN

REACTIONS (10)
  - Fatigue [Unknown]
  - Sleep-related eating disorder [Unknown]
  - Endocrine disorder [Unknown]
  - Feeling abnormal [Unknown]
  - Migraine [Unknown]
  - Depression [Unknown]
  - Haemorrhage [Unknown]
  - Muscle injury [Unknown]
  - Abnormal dreams [Unknown]
  - Weight increased [Unknown]
